FAERS Safety Report 8408565 (Version 2)
Quarter: 2012Q4

REPORT INFORMATION
  Report Type: 
  Country: JP (occurrence: JP)
  Receive Date: 20120216
  Receipt Date: 20121115
  Transmission Date: 20130627
  Serious: Yes (Other)
  Sender: FDA-Public Use
  Company Number: JP-BRISTOL-MYERS SQUIBB COMPANY-16398737

PATIENT
  Age: 1 Day
  Sex: Female

DRUGS (4)
  1. REYATAZ [Suspect]
     Indication: HIV INFECTION
     Dosage: started on (05Nov09-02Dec09,03Dec09-27Dec10).
syrup
     Route: 064
     Dates: start: 20091105, end: 20101227
  2. EPZICOM [Suspect]
     Indication: HIV INFECTION
     Route: 064
     Dates: start: 20091105, end: 20101227
  3. NORVIR [Suspect]
     Indication: HIV INFECTION
     Route: 064
     Dates: start: 20091105, end: 20091202
  4. RETROVIR [Suspect]
     Dosage: 1 Df:05-08ml
     Route: 048
     Dates: start: 20101227, end: 20110207

REACTIONS (3)
  - Premature baby [Unknown]
  - Vomiting [Recovered/Resolved]
  - Anaemia [Recovered/Resolved]
